FAERS Safety Report 10585532 (Version 1)
Quarter: 2014Q4

REPORT INFORMATION
  Report Type: Spontaneous
  Country: IN (occurrence: IN)
  Receive Date: 20141114
  Receipt Date: 20141114
  Transmission Date: 20150529
  Serious: Yes (Life-Threatening, Hospitalization)
  Sender: FDA-Public Use
  Company Number: IN-MYLANLABS-2014M1010236

PATIENT

DRUGS (2)
  1. AMLODIPINE BESILATE [Suspect]
     Active Substance: AMLODIPINE BESYLATE
     Dosage: 100 TABLETS OF 10 MG
     Route: 048
  2. ATENOLOL. [Suspect]
     Active Substance: ATENOLOL
     Dosage: 100 TABLETS OF 50 MG
     Route: 048

REACTIONS (9)
  - Acute kidney injury [Recovered/Resolved]
  - Tachypnoea [None]
  - Continuous haemodiafiltration [None]
  - Intentional overdose [Recovered/Resolved]
  - Tachycardia [None]
  - Hypotension [Recovered/Resolved]
  - Metabolic acidosis [Recovered/Resolved]
  - Anuria [Recovered/Resolved]
  - Atrioventricular block second degree [Recovered/Resolved]
